FAERS Safety Report 10677333 (Version 3)
Quarter: 2015Q1

REPORT INFORMATION
  Report Type: Report from Study
  Country: JP (occurrence: JP)
  Receive Date: 20141226
  Receipt Date: 20150226
  Transmission Date: 20150720
  Serious: Yes (Death, Life-Threatening)
  Sender: FDA-Public Use
  Company Number: JP-B.I. PHARMACEUTICALS,INC./RIDGEFIELD-2014-BI-62310NB

PATIENT
  Age: 74 Year
  Sex: Female
  Weight: 51.9 kg

DRUGS (6)
  1. RINDERON V [Suspect]
     Active Substance: BETAMETHASONE VALERATE
     Indication: MENINGITIS
     Dosage: 8 MG
     Route: 042
     Dates: start: 20141028, end: 20141109
  2. RINDERON V [Suspect]
     Active Substance: BETAMETHASONE VALERATE
     Dosage: 8 MG
     Route: 042
     Dates: start: 20141117, end: 20141206
  3. LOXONIN [Concomitant]
     Active Substance: LOXOPROFEN SODIUM
     Indication: HEADACHE
     Dosage: 180 MG
     Route: 048
     Dates: start: 20141112, end: 20141114
  4. GILOTRIF [Suspect]
     Active Substance: AFATINIB
     Indication: LUNG ADENOCARCINOMA
     Dosage: 40 MG
     Route: 065
     Dates: start: 20141031, end: 20141120
  5. RINDERON V [Suspect]
     Active Substance: BETAMETHASONE VALERATE
     Dosage: 4 MG
     Route: 048
     Dates: start: 20141110, end: 20141116
  6. GLYCENON [Concomitant]
     Indication: MENINGITIS
     Dosage: 600 ML
     Route: 042
     Dates: end: 20141206

REACTIONS (4)
  - Malignant neoplasm progression [Fatal]
  - Diarrhoea [Recovered/Resolved]
  - Melaena [Recovered/Resolved]
  - Platelet count decreased [Recovered/Resolved]

NARRATIVE: CASE EVENT DATE: 20141107
